FAERS Safety Report 24722435 (Version 1)
Quarter: 2024Q4

REPORT INFORMATION
  Report Type: Spontaneous
  Country: US (occurrence: US)
  Receive Date: 20241211
  Receipt Date: 20241211
  Transmission Date: 20250115
  Serious: No
  Sender: PFIZER
  Company Number: US-PFIZER INC-202400319564

PATIENT
  Age: 65 Year
  Sex: Female

DRUGS (3)
  1. TAPAZOLE [Suspect]
     Active Substance: METHIMAZOLE
     Dosage: TAKE 0.5 TABLETS DAILY
     Route: 048
  2. ELIQUIS [Concomitant]
     Active Substance: APIXABAN
     Indication: Deep vein thrombosis
     Dosage: UNK
  3. ELIQUIS [Concomitant]
     Active Substance: APIXABAN
     Indication: Pulmonary embolism

REACTIONS (7)
  - Red blood cell count decreased [Unknown]
  - Mean cell volume increased [Unknown]
  - Mean cell haemoglobin increased [Unknown]
  - Blood sodium decreased [Unknown]
  - Blood immunoglobulin A decreased [Unknown]
  - White blood cell count decreased [Unknown]
  - Off label use [Unknown]
